FAERS Safety Report 21959331 (Version 1)
Quarter: 2023Q1

REPORT INFORMATION
  Report Type: Spontaneous
  Country: US (occurrence: US)
  Receive Date: 20230206
  Receipt Date: 20230206
  Transmission Date: 20230417
  Serious: Yes (Life-Threatening, Hospitalization)
  Sender: FDA-Public Use
  Company Number: US-MLMSERVICE-20160416-0246822-1

PATIENT
  Age: 6 Week
  Sex: Female

DRUGS (2)
  1. PHENYLEPHRINE HYDROCHLORIDE OPHTHALMIC [Suspect]
     Active Substance: PHENYLEPHRINE HYDROCHLORIDE
     Indication: Retinopathy of prematurity
     Dosage: 1 DROP IN EACH EYE
     Route: 047
  2. TROPICAMIDE [Suspect]
     Active Substance: TROPICAMIDE
     Indication: Retinopathy of prematurity
     Dosage: 1 DROP IN EACH EYE
     Route: 047

REACTIONS (5)
  - Cardio-respiratory arrest [Recovered/Resolved]
  - Pulse absent [Recovered/Resolved]
  - Apnoea [Recovered/Resolved]
  - Cyanosis [Recovered/Resolved]
  - Unresponsive to stimuli [Recovered/Resolved]
